FAERS Safety Report 16971268 (Version 1)
Quarter: 2019Q4

REPORT INFORMATION
  Report Type: Spontaneous
  Country: US (occurrence: US)
  Receive Date: 20191029
  Receipt Date: 20191029
  Transmission Date: 20200122
  Serious: No
  Sender: FDA-Public Use
  Company Number: US-HORIZON-VIM-0374-2019

PATIENT
  Age: 42 Year
  Sex: Male

DRUGS (1)
  1. VIMOVO [Suspect]
     Active Substance: ESOMEPRAZOLE MAGNESIUM\NAPROXEN
     Indication: PAIN IN EXTREMITY
     Dosage: 1 TAB BID
     Route: 048

REACTIONS (2)
  - Pain in extremity [Unknown]
  - Therapy cessation [Unknown]

NARRATIVE: CASE EVENT DATE: 201910
